FAERS Safety Report 15133223 (Version 3)
Quarter: 2018Q3

REPORT INFORMATION
  Report Type: Spontaneous
  Country: BE (occurrence: BE)
  Receive Date: 20180712
  Receipt Date: 20180723
  Transmission Date: 20181010
  Serious: Yes (Hospitalization, Other)
  Sender: FDA-Public Use
  Company Number: BE-TEVA-2018-BE-923934

PATIENT
  Sex: Male

DRUGS (2)
  1. AMOXICILLIN W/CLAVULANIC ACID [Suspect]
     Active Substance: AMOXICILLIN\CLAVULANIC ACID
     Route: 048
     Dates: start: 20170715
  2. MIRTAZAPINE. [Suspect]
     Active Substance: MIRTAZAPINE
     Route: 065

REACTIONS (9)
  - Abnormal dreams [Unknown]
  - Dyspnoea [Recovering/Resolving]
  - Agitation [Unknown]
  - Seizure [Unknown]
  - Cough [Recovering/Resolving]
  - Localised oedema [Recovering/Resolving]
  - Pyrexia [Unknown]
  - Anxiety [Unknown]
  - Restless legs syndrome [Unknown]

NARRATIVE: CASE EVENT DATE: 20170716
